FAERS Safety Report 17387764 (Version 1)
Quarter: 2020Q1

REPORT INFORMATION
  Report Type: Spontaneous
  Country: US (occurrence: US)
  Receive Date: 20200206
  Receipt Date: 20200206
  Transmission Date: 20200409
  Serious: No
  Sender: FDA-Public Use
  Company Number: US-RADIUS HEALTH INC.-2020US000082

PATIENT
  Sex: Female

DRUGS (1)
  1. TYMLOS [Suspect]
     Active Substance: ABALOPARATIDE
     Indication: OSTEOPOROSIS POSTMENOPAUSAL
     Dosage: 80 MCG, QD
     Route: 058
     Dates: start: 20191226, end: 20200112

REACTIONS (10)
  - Nausea [Unknown]
  - Stomach mass [Unknown]
  - Choking [Unknown]
  - Vertigo [Unknown]
  - Asthenia [Unknown]
  - Product administered at inappropriate site [Not Recovered/Not Resolved]
  - Cough [Unknown]
  - Abdominal distension [Unknown]
  - Dizziness [Not Recovered/Not Resolved]
  - Fatigue [Unknown]
